FAERS Safety Report 5524482-7 (Version None)
Quarter: 2007Q4

REPORT INFORMATION
  Report Type: 
  Country: None (occurrence: None)
  Receive Date: 20071122
  Receipt Date: 20071113
  Transmission Date: 20080405
  Serious: Yes (Other)
  Sender: FDA-Public Use
  Company Number: PHHY2007BR00490

PATIENT
  Age: 54 Year
  Sex: Female

DRUGS (1)
  1. EXELON [Suspect]
     Route: 048

REACTIONS (1)
  - HEPATITIS [None]
